FAERS Safety Report 6553892-4 (Version None)
Quarter: 2010Q1

REPORT INFORMATION
  Report Type: 
  Country: None (occurrence: None)
  Receive Date: 20100125
  Receipt Date: 20100125
  Transmission Date: 20100710
  Serious: Yes (Other)
  Sender: FDA-Public Use
  Company Number: None

PATIENT
  Age: 56 Year
  Sex: Male
  Weight: 88.4514 kg

DRUGS (1)
  1. PREDNISONE [Suspect]
     Indication: NASAL OPERATION
     Dosage: 4 TABLETS  X 5 DAYS THEN 2 TABLETS  5 DAYS THEN 1 TAB X   PO
     Route: 048

REACTIONS (1)
  - MEDICATION ERROR [None]
